FAERS Safety Report 23666939 (Version 1)
Quarter: 2024Q1

REPORT INFORMATION
  Report Type: Spontaneous
  Country: US (occurrence: US)
  Receive Date: 20240325
  Receipt Date: 20240325
  Transmission Date: 20240410
  Serious: No
  Sender: FDA-Public Use
  Company Number: US-TEVA-VS-3139586

PATIENT
  Age: 74 Year
  Sex: Female

DRUGS (1)
  1. CLONAZEPAM [Suspect]
     Active Substance: CLONAZEPAM
     Indication: Sleep disorder
     Route: 048

REACTIONS (4)
  - Product use in unapproved indication [Not Recovered/Not Resolved]
  - Product taste abnormal [Unknown]
  - Wrong technique in product usage process [Unknown]
  - Feeling abnormal [Unknown]
